FAERS Safety Report 25435516 (Version 1)
Quarter: 2025Q2

REPORT INFORMATION
  Report Type: Spontaneous
  Country: US (occurrence: US)
  Receive Date: 20250613
  Receipt Date: 20250613
  Transmission Date: 20250717
  Serious: Yes (Other)
  Sender: NOVO NORDISK
  Company Number: US-NOVOPROD-1455441

PATIENT
  Sex: Female

DRUGS (2)
  1. VICTOZA [Suspect]
     Active Substance: LIRAGLUTIDE
     Indication: Product used for unknown indication
  2. NOVOLOG [Suspect]
     Active Substance: INSULIN ASPART
     Indication: Product used for unknown indication

REACTIONS (8)
  - Brain injury [Unknown]
  - Amnesia [Unknown]
  - Near death experience [Unknown]
  - Weight decreased [Unknown]
  - Infection [Unknown]
  - Pancreatic disorder [Unknown]
  - Weight increased [Unknown]
  - Blood glucose increased [Unknown]
